FAERS Safety Report 4407643-X (Version None)
Quarter: 2004Q3

REPORT INFORMATION
  Report Type: 
  Country: None (occurrence: None)
  Receive Date: 20040721
  Receipt Date: 20040702
  Transmission Date: 20050211
  Serious: Yes (Other)
  Sender: FDA-Public Use
  Company Number: US_0404101976

PATIENT
  Age: 82 Year

DRUGS (2)
  1. EVISTA [Suspect]
  2. FOSAMAX [Concomitant]

REACTIONS (1)
  - NO ADVERSE DRUG EFFECT [None]
